FAERS Safety Report 18729354 (Version 1)
Quarter: 2021Q1

REPORT INFORMATION
  Report Type: Spontaneous
  Country: US (occurrence: US)
  Receive Date: 20210111
  Receipt Date: 20210111
  Transmission Date: 20210419
  Serious: Yes (Hospitalization)
  Sender: FDA-Public Use
  Company Number: None

PATIENT
  Age: 43 Year
  Sex: Female

DRUGS (1)
  1. XALKORI [Suspect]
     Active Substance: CRIZOTINIB
     Route: 048
     Dates: start: 20201207, end: 20210107

REACTIONS (5)
  - Abdominal pain upper [None]
  - Pyrexia [None]
  - Rash [None]
  - Infection [None]
  - Diarrhoea [None]

NARRATIVE: CASE EVENT DATE: 20210105
